FAERS Safety Report 4896517-6 (Version None)
Quarter: 2006Q1

REPORT INFORMATION
  Report Type: 
  Country: None (occurrence: None)
  Receive Date: 20060131
  Receipt Date: 20050929
  Transmission Date: 20060701
  Serious: Yes (Other)
  Sender: FDA-Public Use
  Company Number: BE-GLAXOSMITHKLINE-B0396042A

PATIENT
  Age: 65 Year
  Sex: Female
  Weight: 58 kg

DRUGS (2)
  1. MALARONE [Suspect]
     Indication: MALARIA PROPHYLAXIS
     Dosage: 1TAB PER DAY
     Route: 048
     Dates: start: 20041201, end: 20041201
  2. BOOSTRIX [Concomitant]
     Indication: PROPHYLAXIS
     Route: 030
     Dates: start: 20041109

REACTIONS (4)
  - ANAL FISSURE [None]
  - ANAL HAEMORRHAGE [None]
  - HAEMORRHAGE [None]
  - RECTAL TENESMUS [None]
